FAERS Safety Report 14448470 (Version 1)
Quarter: 2018Q1

REPORT INFORMATION
  Report Type: Spontaneous
  Country: US (occurrence: US)
  Receive Date: 20180126
  Receipt Date: 20180126
  Transmission Date: 20180509
  Serious: No
  Sender: FDA-Public Use
  Company Number: US-SUNOVION-2018SUN000172

PATIENT
  Sex: Female

DRUGS (2)
  1. APTIOM [Suspect]
     Active Substance: ESLICARBAZEPINE ACETATE
     Dosage: UNK UNSPECIFIED DOSE, DIFFERENT THAN 600 MG
     Route: 048
  2. APTIOM [Suspect]
     Active Substance: ESLICARBAZEPINE ACETATE
     Dosage: 600 MG, UNK
     Route: 048

REACTIONS (3)
  - Headache [Unknown]
  - Migraine [Unknown]
  - Malaise [Unknown]
